FAERS Safety Report 19585587 (Version 1)
Quarter: 2021Q3

REPORT INFORMATION
  Report Type: Spontaneous
  Country: US (occurrence: US)
  Receive Date: 20210721
  Receipt Date: 20210721
  Transmission Date: 20211014
  Serious: Yes (Other)
  Sender: FDA-Public Use
  Company Number: US-AUROBINDO-AUR-APL-2021-030360

PATIENT
  Age: 48 Year
  Sex: Female

DRUGS (3)
  1. ISOPROTERENOL. [Concomitant]
     Active Substance: ISOPROTERENOL
     Indication: PRODUCT USED FOR UNKNOWN INDICATION
     Dosage: UNK
     Route: 065
  2. METHADONE [Suspect]
     Active Substance: METHADONE HYDROCHLORIDE
     Indication: PRODUCT USED FOR UNKNOWN INDICATION
     Dosage: 30 MILLIGRAM, ONCE A DAY
     Route: 065
  3. MAGNESIUM [Concomitant]
     Active Substance: MAGNESIUM
     Indication: PRODUCT USED FOR UNKNOWN INDICATION
     Dosage: UNK
     Route: 065

REACTIONS (12)
  - Respiratory failure [Unknown]
  - Stress cardiomyopathy [Unknown]
  - Mental status changes [Unknown]
  - Ventricular tachycardia [Unknown]
  - Electrocardiogram QT prolonged [Unknown]
  - Hypokinesia [Unknown]
  - Normochromic anaemia [Unknown]
  - Torsade de pointes [Unknown]
  - Overdose [Unknown]
  - Ejection fraction decreased [Recovering/Resolving]
  - Sinus tachycardia [Unknown]
  - Bradycardia [Unknown]
